FAERS Safety Report 5147633-5 (Version None)
Quarter: 2006Q4

REPORT INFORMATION
  Report Type: 
  Country: None (occurrence: None)
  Receive Date: 20061110
  Receipt Date: 20061102
  Transmission Date: 20070319
  Serious: Yes (Death, Life-Threatening, Hospitalization)
  Sender: FDA-Public Use
  Company Number: FR-JNJFOC-20061004662

PATIENT
  Sex: Male
  Weight: 58 kg

DRUGS (2)
  1. RISPERDAL [Suspect]
     Indication: AGGRESSION
     Route: 048
  2. RISPERDAL [Suspect]
     Indication: DELUSION
     Route: 048

REACTIONS (5)
  - DEATH [None]
  - ESCHAR [None]
  - FALL [None]
  - FEMORAL NECK FRACTURE [None]
  - PARKINSONISM [None]
